FAERS Safety Report 6654368-6 (Version None)
Quarter: 2010Q1

REPORT INFORMATION
  Report Type: 
  Country: None (occurrence: None)
  Receive Date: 20100326
  Receipt Date: 20100316
  Transmission Date: 20100710
  Serious: Yes (Other)
  Sender: FDA-Public Use
  Company Number: JP-PFIZER INC-2010029752

PATIENT

DRUGS (10)
  1. SALAZOPYRIN [Suspect]
     Dosage: UNK
     Route: 050
  2. SALAZOPYRIN [Suspect]
     Dosage: 12 TABLETS/DAY
     Route: 050
  3. MAGNESIUM OXIDE [Concomitant]
     Dosage: 500 MG, 3X/DAY
     Route: 050
  4. LOXONIN [Concomitant]
     Dosage: 60 MG, 3X/DAY
     Route: 050
  5. ULCERLMIN [Concomitant]
     Dosage: 1 G, 3X/DAY
     Route: 050
  6. FERROMIA [Concomitant]
     Dosage: 100 MG, 2X/DAY
     Route: 050
  7. GASCON [Concomitant]
     Dosage: 40 MG, 3X/DAY
     Route: 050
  8. CINAL [Concomitant]
     Dosage: 3 G, 3X/DAY
     Route: 050
  9. EURODIN [Concomitant]
     Dosage: 2 G, 1X/DAY
     Route: 050
  10. REMICADE [Concomitant]
     Route: 050

REACTIONS (1)
  - ABORTION SPONTANEOUS [None]
